FAERS Safety Report 13838871 (Version 1)
Quarter: 2017Q3

REPORT INFORMATION
  Report Type: Spontaneous
  Country: US (occurrence: US)
  Receive Date: 20170807
  Receipt Date: 20170807
  Transmission Date: 20171127
  Serious: No
  Sender: FDA-Public Use
  Company Number: US-PFIZER INC-2017338309

PATIENT

DRUGS (1)
  1. ADVIL CONGESTION RELIEF [Suspect]
     Active Substance: IBUPROFEN\PHENYLEPHRINE HYDROCHLORIDE
     Indication: NASAL OEDEMA
     Dosage: 200 MG, UNK

REACTIONS (3)
  - Lip swelling [Unknown]
  - Condition aggravated [Unknown]
  - Ear discomfort [Unknown]
